FAERS Safety Report 8817086 (Version 1)
Quarter: 2012Q4

REPORT INFORMATION
  Report Type: Spontaneous
  Country: US (occurrence: None)
  Receive Date: 20121003
  Receipt Date: 20121003
  Transmission Date: 20130627
  Serious: Yes (Other)
  Sender: FDA-Public Use
  Company Number: None

PATIENT
  Age: 47 Year
  Sex: Female
  Weight: 97.07 kg

DRUGS (1)
  1. LOESTRIN FE [Suspect]
     Dosage: 1 tablet once daily
     Route: 048
     Dates: start: 20120501, end: 20120916

REACTIONS (1)
  - Pulmonary embolism [None]
